FAERS Safety Report 6266282-9 (Version None)
Quarter: 2009Q3

REPORT INFORMATION
  Report Type: 
  Country: None (occurrence: None)
  Receive Date: 20090713
  Receipt Date: 20090630
  Transmission Date: 20100115
  Serious: Yes (Death, Hospitalization, Other)
  Sender: FDA-Public Use
  Company Number: PHEH2009US07329

PATIENT
  Sex: Female

DRUGS (24)
  1. CYCLOSPORINE [Suspect]
     Indication: GRAFT VERSUS HOST DISEASE
  2. CELLCEPT [Concomitant]
     Indication: GRAFT VERSUS HOST DISEASE
     Dosage: 1 G, BID
     Route: 048
  3. PREDNISONE [Concomitant]
     Indication: GRAFT VERSUS HOST DISEASE
     Dosage: 17 MG, QAM
  4. EXJADE [Concomitant]
     Indication: MYELODYSPLASTIC SYNDROME
  5. FLUTICASONE W/SALMETEROL [Concomitant]
     Dosage: 100/50 INF 1 PUFF BID
  6. CALCIUM CITRATE W/VITAMIN D NOS [Concomitant]
     Dosage: 1000/450 DAILY
     Route: 048
  7. MULTI-VITAMINS [Concomitant]
  8. FOLIC ACID [Concomitant]
     Dosage: 1 G, QD
  9. ALBUTEROL [Concomitant]
     Dosage: 2 PUFFS Q4H PRN
  10. TIOTROPIUM [Concomitant]
     Dosage: 18 UG, QD
  11. OMEPRAZOLE [Concomitant]
     Dosage: 20 MG, BID
     Route: 048
  12. AMITRIPTYLINE [Concomitant]
     Dosage: 25 MG, QHS
     Route: 048
  13. LORAZEPAM [Concomitant]
     Dosage: 0.5 MG, PRN INSOMNIA
     Route: 048
  14. AVINZA [Concomitant]
     Dosage: 120 MG, 2 CAPS BID
  15. NYSTATIN [Concomitant]
     Dosage: 1% CREAM BID
     Route: 061
  16. COUMADIN [Concomitant]
     Dosage: 2.5 MG, QD
  17. AMBIEN [Concomitant]
     Dosage: UNK
  18. METOPROLOL TARTRATE [Concomitant]
     Dosage: 12.5 MG, BID
  19. SENNA [Concomitant]
  20. BONIVA [Concomitant]
  21. FUROSEMIDE [Concomitant]
     Dosage: 20 MG, UNK
  22. OXYGEN [Concomitant]
  23. MORPHINE SULFATE [Concomitant]
     Dosage: 15 MG, PRN
     Route: 048
  24. AMPICILLIN [Concomitant]

REACTIONS (43)
  - ACIDOSIS [None]
  - ARTHRALGIA [None]
  - AZOTAEMIA [None]
  - BRADYCARDIA [None]
  - CONFUSIONAL STATE [None]
  - DISSEMINATED INTRAVASCULAR COAGULATION [None]
  - DYSPHAGIA [None]
  - DYSPNOEA [None]
  - ENTEROCOCCAL BACTERAEMIA [None]
  - ENTEROCOCCAL INFECTION [None]
  - EYE SWELLING [None]
  - FUNGAL INFECTION [None]
  - FUNGUS CULTURE POSITIVE [None]
  - GASTROINTESTINAL HAEMORRHAGE [None]
  - HAEMATEMESIS [None]
  - HAEMOPTYSIS [None]
  - HYPERCAPNIA [None]
  - HYPERCOAGULATION [None]
  - HYPOPHAGIA [None]
  - HYPOVOLAEMIA [None]
  - LIP SWELLING [None]
  - MENTAL STATUS CHANGES [None]
  - METABOLIC ACIDOSIS [None]
  - OCULAR HYPERAEMIA [None]
  - OEDEMA PERIPHERAL [None]
  - OESOPHAGEAL CANDIDIASIS [None]
  - PLEURISY [None]
  - PNEUMONIA STAPHYLOCOCCAL [None]
  - PRODUCTIVE COUGH [None]
  - RALES [None]
  - RASH [None]
  - RENAL FAILURE ACUTE [None]
  - RENAL IMPAIRMENT [None]
  - RESPIRATORY DISTRESS [None]
  - RESPIRATORY FAILURE [None]
  - SEPTIC SHOCK [None]
  - SOMNOLENCE [None]
  - SPUTUM DISCOLOURED [None]
  - TACHYCARDIA [None]
  - THROMBOCYTOPENIA [None]
  - URINE OUTPUT DECREASED [None]
  - VOMITING [None]
  - WHEEZING [None]
